FAERS Safety Report 24825476 (Version 2)
Quarter: 2025Q1

REPORT INFORMATION
  Report Type: Spontaneous
  Country: US (occurrence: US)
  Receive Date: 20250109
  Receipt Date: 20250123
  Transmission Date: 20250409
  Serious: Yes (Other)
  Sender: TEVA
  Company Number: US-TEVA-VS-3284269

PATIENT
  Age: 53 Year
  Sex: Male

DRUGS (1)
  1. PREDNISONE [Suspect]
     Active Substance: PREDNISONE
     Indication: Gastroenteritis eosinophilic
     Route: 065

REACTIONS (2)
  - Osteoporosis [Unknown]
  - Tibia fracture [Unknown]
